FAERS Safety Report 25907482 (Version 1)
Quarter: 2025Q4

REPORT INFORMATION
  Report Type: Spontaneous
  Country: US (occurrence: US)
  Receive Date: 20251010
  Receipt Date: 20251010
  Transmission Date: 20260118
  Serious: Yes (Other)
  Sender: ACCORD
  Company Number: US-Accord-507337

PATIENT
  Age: 60 Year
  Sex: Female

DRUGS (3)
  1. AMLODIPINE [Suspect]
     Active Substance: AMLODIPINE BESYLATE
     Indication: Blood pressure fluctuation
  2. VOCLOSPORIN [Suspect]
     Active Substance: VOCLOSPORIN
     Indication: Lupus nephritis
     Dosage: SOFTGEL CAPSULE?STRENGTH: 7.9 MG?23.7 MILLIGRAM, BID
     Route: 048
     Dates: start: 20230223
  3. VOCLOSPORIN [Suspect]
     Active Substance: VOCLOSPORIN
     Indication: Lupus nephritis
     Dosage: SOFTGEL CAPSULE?STRENGTH: 7.9 MG?23.7 MILLIGRAM, BID
     Route: 048
     Dates: start: 20230526

REACTIONS (4)
  - Aortic valve incompetence [Not Recovered/Not Resolved]
  - Cardiac murmur [Not Recovered/Not Resolved]
  - Joint swelling [Unknown]
  - Drug ineffective [Unknown]

NARRATIVE: CASE EVENT DATE: 20250301
